FAERS Safety Report 6895571-X (Version None)
Quarter: 2010Q3

REPORT INFORMATION
  Report Type: 
  Country: None (occurrence: None)
  Receive Date: 20100802
  Receipt Date: 20100728
  Transmission Date: 20110219
  Serious: Yes (Death, Other)
  Sender: FDA-Public Use
  Company Number: PHHY2010BR49386

PATIENT
  Age: 51 Year

DRUGS (4)
  1. CYCLOSPORINE [Suspect]
     Indication: HEART TRANSPLANT
  2. AZATHIOPRINE [Suspect]
     Indication: HEART TRANSPLANT
  3. PREDNISONE [Suspect]
     Indication: HEART TRANSPLANT
     Dosage: 0.5 MG/KG DAILY
  4. PREDNISONE [Suspect]
     Dosage: 0.1 MG/KG DAILY

REACTIONS (7)
  - CARDIAC FAILURE [None]
  - CARDIAC OUTPUT DECREASED [None]
  - CORONARY ARTERY DISEASE [None]
  - HEART TRANSPLANT [None]
  - HEART TRANSPLANT REJECTION [None]
  - SEPSIS [None]
  - TRANSPLANT REJECTION [None]
